FAERS Safety Report 25428269 (Version 1)
Quarter: 2025Q2

REPORT INFORMATION
  Report Type: Spontaneous
  Country: ES (occurrence: ES)
  Receive Date: 20250612
  Receipt Date: 20250612
  Transmission Date: 20250717
  Serious: Yes (Other)
  Sender: MYLAN
  Company Number: ES-MYLANLABS-2025M1049037

PATIENT
  Age: 62 Year
  Sex: Male

DRUGS (8)
  1. CYCLOSPORINE [Suspect]
     Active Substance: CYCLOSPORINE
     Indication: Dry eye
  2. CYCLOSPORINE [Suspect]
     Active Substance: CYCLOSPORINE
     Route: 047
  3. CYCLOSPORINE [Suspect]
     Active Substance: CYCLOSPORINE
     Route: 047
  4. CYCLOSPORINE [Suspect]
     Active Substance: CYCLOSPORINE
  5. INSULIN NOS [Suspect]
     Active Substance: INSULIN NOS
     Indication: Dry eye
  6. INSULIN NOS [Suspect]
     Active Substance: INSULIN NOS
     Route: 065
  7. INSULIN NOS [Suspect]
     Active Substance: INSULIN NOS
     Route: 065
  8. INSULIN NOS [Suspect]
     Active Substance: INSULIN NOS

REACTIONS (2)
  - Therapy non-responder [Unknown]
  - Off label use [Unknown]
